FAERS Safety Report 9845495 (Version 4)
Quarter: 2014Q1

REPORT INFORMATION
  Report Type: Spontaneous
  Country: JP (occurrence: None)
  Receive Date: 20140123
  Receipt Date: 20140304
  Transmission Date: 20141002
  Serious: Yes (Life-Threatening)
  Sender: FDA-Public Use
  Company Number: JP-014406

PATIENT
  Age: 70 Year
  Sex: Male

DRUGS (16)
  1. GONAX [Suspect]
     Indication: PROSTATE CANCER
     Route: 058
     Dates: start: 20131101
  2. GONAX [Suspect]
     Indication: ANTIANDROGEN THERAPY
     Route: 058
     Dates: start: 20131101
  3. CASODEX [Suspect]
     Indication: PROSTATE CANCER
     Dates: start: 20121106, end: 20130621
  4. CASODEX [Suspect]
     Indication: ANTIANDROGEN THERAPY
     Dates: start: 20121106, end: 20130621
  5. ODYNE [Suspect]
     Indication: PROSTATE CANCER
     Dates: start: 20130719, end: 20130906
  6. ODYNE [Suspect]
     Indication: ANTIANDROGEN THERAPY
     Dates: start: 20130719, end: 20130906
  7. ZOLADEX LA [Suspect]
     Indication: PROSTATE CANCER
     Route: 058
     Dates: start: 20130215, end: 20130809
  8. ZOLADEX LA [Suspect]
     Indication: ANTIANDROGEN THERAPY
     Route: 058
     Dates: start: 20130215, end: 20130809
  9. ESTRACYT [Suspect]
     Indication: PROSTATE CANCER
     Dates: start: 20130906
  10. ESTRACYT [Suspect]
     Indication: ANTIANDROGEN THERAPY
     Dates: start: 20130906
  11. LEUPLIN [Concomitant]
  12. TRAMAL [Concomitant]
  13. NEXIUM [Concomitant]
  14. MYSLEE [Concomitant]
  15. DECADRON [Concomitant]
  16. CELESTAMINE [Concomitant]

REACTIONS (9)
  - Pulmonary embolism [None]
  - Bone cyst [None]
  - Radius fracture [None]
  - Fall [None]
  - Prostatic specific antigen increased [None]
  - Drug ineffective [None]
  - Pulmonary thrombosis [None]
  - Intentional drug misuse [None]
  - Bone lesion [None]
